FAERS Safety Report 11979022 (Version 1)
Quarter: 2016Q1

REPORT INFORMATION
  Report Type: Report from Study
  Country: US (occurrence: US)
  Receive Date: 20160129
  Receipt Date: 20160129
  Transmission Date: 20160526
  Serious: No
  Sender: FDA-Public Use
  Company Number: US-ABBVIE-15K-163-1404474-00

PATIENT
  Age: 53 Year
  Sex: Male

DRUGS (2)
  1. HUMIRA [Suspect]
     Active Substance: ADALIMUMAB
     Dosage: TWO INJECTIONS
     Route: 065
     Dates: start: 20150504
  2. HUMIRA [Suspect]
     Active Substance: ADALIMUMAB
     Indication: PSORIATIC ARTHROPATHY
     Route: 065
     Dates: end: 20150119

REACTIONS (6)
  - Herpes zoster [Not Recovered/Not Resolved]
  - Purulent discharge [Unknown]
  - Fall [Recovering/Resolving]
  - Tibia fracture [Recovering/Resolving]
  - Blister [Unknown]
  - Wrist fracture [Recovering/Resolving]

NARRATIVE: CASE EVENT DATE: 20150119
